FAERS Safety Report 7950897-3 (Version None)
Quarter: 2011Q4

REPORT INFORMATION
  Report Type: 
  Country: None (occurrence: None)
  Receive Date: 20111201
  Receipt Date: 20111117
  Transmission Date: 20120403
  Serious: Yes (Hospitalization)
  Sender: FDA-Public Use
  Company Number: US-RANBAXY-2011US-50595

PATIENT
  Age: 14 Month
  Sex: Male

DRUGS (1)
  1. DONEPEZIL HYDROCHLORIDE [Suspect]
     Indication: PRODUCT USED FOR UNKNOWN INDICATION
     Dosage: 10 MG, ONE TABLET
     Route: 048

REACTIONS (7)
  - VOMITING [None]
  - DIARRHOEA [None]
  - MEDICATION ERROR [None]
  - MENTAL STATUS CHANGES [None]
  - DROOLING [None]
  - SOMNOLENCE [None]
  - BRADYCARDIA [None]
